FAERS Safety Report 5322691-3 (Version None)
Quarter: 2007Q2

REPORT INFORMATION
  Report Type: 
  Country: None (occurrence: None)
  Receive Date: 20070511
  Receipt Date: 20070502
  Transmission Date: 20071010
  Serious: Yes (Hospitalization, Other)
  Sender: FDA-Public Use
  Company Number: US-PFIZER INC-2006042894

PATIENT
  Sex: Male
  Weight: 115.7 kg

DRUGS (5)
  1. LIPITOR [Suspect]
     Indication: BLOOD CHOLESTEROL INCREASED
  2. PLAVIX [Concomitant]
     Route: 065
  3. VASOTEC [Concomitant]
     Route: 065
  4. VERAPAMIL [Concomitant]
     Route: 065
  5. DYAZIDE [Concomitant]
     Route: 065

REACTIONS (6)
  - ARTHROPATHY [None]
  - BLOOD POTASSIUM DECREASED [None]
  - FATIGUE [None]
  - INSOMNIA [None]
  - MUSCULAR WEAKNESS [None]
  - TRANSIENT ISCHAEMIC ATTACK [None]
